FAERS Safety Report 6814180-1 (Version None)
Quarter: 2010Q3

REPORT INFORMATION
  Report Type: 
  Country: None (occurrence: None)
  Receive Date: 20100702
  Receipt Date: 20100624
  Transmission Date: 20110219
  Serious: Yes (Other)
  Sender: FDA-Public Use
  Company Number: JP-JNJFOC-20100602641

PATIENT
  Sex: Male

DRUGS (5)
  1. DUROTEP MT [Suspect]
     Indication: CENTRAL PAIN SYNDROME
     Route: 062
  2. DUROTEP MT [Suspect]
     Indication: CANCER PAIN
     Route: 062
  3. MORPHINE HYDROCHLORIDE [Suspect]
     Indication: PRODUCT USED FOR UNKNOWN INDICATION
     Route: 048
  4. LENDORMIN [Concomitant]
     Indication: INSOMNIA
     Route: 048
  5. PRIMPERAN TAB [Concomitant]
     Route: 048

REACTIONS (3)
  - BLOOD GLUCOSE INCREASED [None]
  - NAUSEA [None]
  - TREATMENT NONCOMPLIANCE [None]
